FAERS Safety Report 7700631-7 (Version None)
Quarter: 2011Q3

REPORT INFORMATION
  Report Type: 
  Country: None (occurrence: None)
  Receive Date: 20110822
  Receipt Date: 20110822
  Transmission Date: 20111222
  Serious: Yes (Other)
  Sender: FDA-Public Use
  Company Number: None

PATIENT
  Age: 68 Year
  Sex: Female
  Weight: 82.1 kg

DRUGS (1)
  1. GEODON [Suspect]
     Dosage: ONE
     Route: 048
     Dates: start: 20110728, end: 20110812

REACTIONS (5)
  - DELUSION [None]
  - PARANOIA [None]
  - PANIC REACTION [None]
  - COMMUNICATION DISORDER [None]
  - MANIA [None]
